FAERS Safety Report 6216987-0 (Version None)
Quarter: 2009Q2

REPORT INFORMATION
  Report Type: 
  Country: None (occurrence: None)
  Receive Date: 20090604
  Receipt Date: 20090520
  Transmission Date: 20091009
  Serious: Yes (Other)
  Sender: FDA-Public Use
  Company Number: 284082

PATIENT
  Age: 77 Year
  Sex: Male
  Weight: 78.1 kg

DRUGS (8)
  1. VANCOMYCIN [Suspect]
     Indication: CLOSTRIDIAL INFECTION
     Dosage: 125 MG, 4 DAY, ORAL
     Route: 048
     Dates: start: 20090505
  2. VANCOMYCIN [Suspect]
     Indication: DIARRHOEA
     Dosage: 125 MG, 4 DAY, ORAL
     Route: 048
     Dates: start: 20090505
  3. WARFARIN SODIUM [Suspect]
     Indication: ATRIAL FIBRILLATION
     Dosage: 1 MG, 1 DAY, ORAL
     Route: 048
  4. ATENOLOL [Concomitant]
  5. CITALOPRAM [Concomitant]
  6. FUROSEMIDE [Concomitant]
  7. LEVOTHYROXINE [Concomitant]
  8. PRAVASTATIN [Concomitant]

REACTIONS (1)
  - INTERNATIONAL NORMALISED RATIO INCREASED [None]
